FAERS Safety Report 7344939-6 (Version None)
Quarter: 2011Q1

REPORT INFORMATION
  Report Type: 
  Country: None (occurrence: None)
  Receive Date: 20110310
  Receipt Date: 20110301
  Transmission Date: 20110831
  Serious: Yes (Other)
  Sender: FDA-Public Use
  Company Number: US-JNJFOC-20101005352

PATIENT
  Sex: Female
  Weight: 72.58 kg

DRUGS (4)
  1. HYDROCODONE BITARTRATE [Concomitant]
     Indication: PAIN
     Route: 048
  2. HYDROCHLOROTHIAZIDE [Concomitant]
     Indication: BLOOD PRESSURE
     Route: 048
  3. VENLAFAXINE [Concomitant]
     Indication: DEPRESSION
     Route: 048
  4. REMICADE [Suspect]
     Indication: RHEUMATOID ARTHRITIS
     Route: 042

REACTIONS (6)
  - BLOOD CHOLESTEROL INCREASED [None]
  - DYSPHAGIA [None]
  - TONSILLITIS [None]
  - COUGH [None]
  - HYPERTENSION [None]
  - ORAL INFECTION [None]
